FAERS Safety Report 9691263 (Version 5)
Quarter: 2013Q4

REPORT INFORMATION
  Report Type: Spontaneous
  Country: JP (occurrence: JP)
  Receive Date: 20131115
  Receipt Date: 20131218
  Transmission Date: 20140711
  Serious: Yes (Death, Other)
  Sender: FDA-Public Use
  Company Number: JP-PFIZER INC-2013326875

PATIENT
  Age: 70 Year
  Sex: Male
  Weight: 67 kg

DRUGS (6)
  1. LYRICA [Suspect]
     Indication: PAIN IN EXTREMITY
     Dosage: 75 MG, DAILY
     Route: 048
     Dates: start: 20131021
  2. SEROQUEL [Concomitant]
     Indication: PSYCHOTIC DISORDER
     Dosage: 750 MG DAILY
     Route: 048
     Dates: end: 20131102
  3. LONASEN [Concomitant]
     Indication: PSYCHOTIC DISORDER
     Dosage: 10 MG, 2X/DAY
     Route: 048
     Dates: end: 20131102
  4. INVEGA [Concomitant]
     Indication: PSYCHOTIC DISORDER
     Dosage: 9 MG, 1X/DAY
     Route: 048
     Dates: start: 20120801, end: 20131102
  5. TAMSULOSIN [Concomitant]
     Indication: DYSURIA
     Dosage: 0.2 MG, 1X/DAY
     Route: 048
     Dates: start: 20110604, end: 20131102
  6. PAPAVERINE [Concomitant]
     Indication: DYSURIA
     Dosage: 10 MG, 2X/DAY
     Route: 048
     Dates: start: 20110604, end: 20131102

REACTIONS (4)
  - Myocardial infarction [Fatal]
  - Cardio-respiratory arrest [Fatal]
  - Altered state of consciousness [Unknown]
  - Ventricular fibrillation [Unknown]
